FAERS Safety Report 17979656 (Version 1)
Quarter: 2020Q3

REPORT INFORMATION
  Report Type: Spontaneous
  Country: FR (occurrence: FR)
  Receive Date: 20200703
  Receipt Date: 20200703
  Transmission Date: 20201103
  Serious: Yes (Hospitalization)
  Sender: FDA-Public Use
  Company Number: NVSC2020FR182707

PATIENT
  Age: 39 Year
  Sex: Male

DRUGS (2)
  1. SERESTA [Suspect]
     Active Substance: OXAZEPAM
     Indication: SUICIDE ATTEMPT
     Dosage: 1000 MG, TOTAL (20 COMPRIM?S DE 50MG)
     Route: 048
     Dates: start: 20190716, end: 20190716
  2. PARACETAMOL [Suspect]
     Active Substance: ACETAMINOPHEN
     Indication: SUICIDE ATTEMPT
     Dosage: 3 DF (3 TABLETTES)
     Route: 048
     Dates: start: 20190716, end: 20190716

REACTIONS (3)
  - Toxicity to various agents [Recovered/Resolved]
  - Bradykinesia [Recovered/Resolved]
  - Somnolence [Recovered/Resolved]

NARRATIVE: CASE EVENT DATE: 20190716
